FAERS Safety Report 21749951 (Version 1)
Quarter: 2022Q4

REPORT INFORMATION
  Report Type: Spontaneous
  Country: US (occurrence: None)
  Receive Date: 20221219
  Receipt Date: 20221219
  Transmission Date: 20230113
  Serious: Yes (Other)
  Sender: FDA-Public Use
  Company Number: None

PATIENT
  Age: 51 Year
  Sex: Male
  Weight: 72 kg

DRUGS (1)
  1. SOFOSBUVIR\VELPATASVIR [Suspect]
     Active Substance: SOFOSBUVIR\VELPATASVIR
     Indication: Hepatitis viral
     Dosage: FREQUENCY : DAILY;?
     Route: 048
     Dates: start: 20220620, end: 20220912

REACTIONS (2)
  - Liver transplant [None]
  - Virologic failure [None]

NARRATIVE: CASE EVENT DATE: 20221213
